FAERS Safety Report 21126051 (Version 1)
Quarter: 2022Q3

REPORT INFORMATION
  Report Type: Spontaneous
  Country: US (occurrence: None)
  Receive Date: 20220723
  Receipt Date: 20220723
  Transmission Date: 20221027
  Serious: Yes (Disabling, Other)
  Sender: FDA-Public Use
  Company Number: None

PATIENT
  Age: 33 Year
  Sex: Female
  Weight: 81 kg

DRUGS (2)
  1. SUBOXONE [Suspect]
     Active Substance: BUPRENORPHINE HYDROCHLORIDE\NALOXONE HYDROCHLORIDE
     Indication: Drug dependence
     Dosage: FREQUENCY : TWICE A DAY;?
     Route: 060
     Dates: start: 20100801
  2. LINZESS [Concomitant]
     Active Substance: LINACLOTIDE

REACTIONS (2)
  - Dental caries [None]
  - Tooth loss [None]

NARRATIVE: CASE EVENT DATE: 20120819
